FAERS Safety Report 14680022 (Version 2)
Quarter: 2018Q2

REPORT INFORMATION
  Report Type: Report from Study
  Country: TR (occurrence: TR)
  Receive Date: 20180326
  Receipt Date: 20180418
  Transmission Date: 20180711
  Serious: Yes (Death, Hospitalization, Other)
  Sender: FDA-Public Use
  Company Number: PHHY2018TR052413

PATIENT
  Age: 66 Year
  Sex: Female
  Weight: 40 kg

DRUGS (2)
  1. LDK378 [Suspect]
     Active Substance: CERITINIB
     Indication: LUNG ADENOCARCINOMA
     Dosage: 750 MG, UNK
     Route: 048
     Dates: start: 20161031, end: 20180320
  2. RANITAB [Concomitant]
     Indication: PRODUCT USED FOR UNKNOWN INDICATION
     Dosage: 1 OT, BID (2 X 1)
     Route: 065
     Dates: start: 20180316, end: 20180321

REACTIONS (8)
  - Malnutrition [Unknown]
  - Hypomagnesaemia [Unknown]
  - Pneumonia [Fatal]
  - Hyponatraemia [Fatal]
  - Hypokalaemia [Unknown]
  - Respiratory failure [Fatal]
  - Cachexia [Fatal]
  - Hypocalcaemia [Unknown]

NARRATIVE: CASE EVENT DATE: 20180316
